FAERS Safety Report 23038025 (Version 1)
Quarter: 2023Q4

REPORT INFORMATION
  Report Type: Spontaneous
  Country: US (occurrence: US)
  Receive Date: 20231006
  Receipt Date: 20231006
  Transmission Date: 20240109
  Serious: Yes (Hospitalization, Other)
  Sender: FDA-Public Use
  Company Number: US-PFIZER INC-PV202300164365

PATIENT
  Age: 55 Year
  Sex: Male

DRUGS (11)
  1. DEXMEDETOMIDINE HYDROCHLORIDE [Suspect]
     Active Substance: DEXMEDETOMIDINE HYDROCHLORIDE
     Indication: Coronary artery bypass
     Dosage: 0.5 UG/KG/H
  2. FENTANYL [Concomitant]
     Active Substance: FENTANYL
     Indication: Coronary artery bypass
     Dosage: UNK
  3. LIDOCAINE [Concomitant]
     Active Substance: LIDOCAINE
     Indication: Coronary artery bypass
     Dosage: UNK
  4. ETOMIDATE [Concomitant]
     Active Substance: ETOMIDATE
     Indication: Coronary artery bypass
     Dosage: UNK
  5. ROCURONIUM [Concomitant]
     Active Substance: ROCURONIUM BROMIDE
     Indication: Coronary artery bypass
     Dosage: UNK
  6. AMINOCAPROIC ACID [Concomitant]
     Active Substance: AMINOCAPROIC ACID
     Indication: Coronary artery bypass
     Dosage: UNK
  7. VANCOMYCIN [Concomitant]
     Active Substance: VANCOMYCIN
     Indication: Antibiotic therapy
     Dosage: UNK
  8. CEFAZOLIN [Concomitant]
     Active Substance: CEFAZOLIN
     Indication: Antibiotic therapy
     Dosage: UNK
  9. NOREPINEPHRINE [Concomitant]
     Active Substance: NOREPINEPHRINE
     Indication: Coronary artery bypass
     Dosage: UNK
  10. EPINEPHRINE [Concomitant]
     Active Substance: EPINEPHRINE
     Indication: Coronary artery bypass
     Dosage: UNK
  11. HEPARIN [Concomitant]
     Active Substance: HEPARIN SODIUM
     Indication: Coronary artery bypass
     Dosage: 24000 IU (400 UNITS/KG)

REACTIONS (1)
  - Diabetes insipidus [Recovered/Resolved]
